FAERS Safety Report 17922514 (Version 2)
Quarter: 2025Q4

REPORT INFORMATION
  Report Type: Spontaneous
  Country: EU (occurrence: EU)
  Receive Date: 20200622
  Receipt Date: 20251217
  Transmission Date: 20260117
  Serious: Yes (Congenital Anomaly, Other)
  Sender: TAKEDA
  Company Number: None

PATIENT
  Sex: Male

DRUGS (3)
  1. ICLUSIG [Suspect]
     Active Substance: PONATINIB HYDROCHLORIDE
     Indication: Product used for unknown indication
     Dosage: 15 MILLIGRAM, QOD
     Route: 064
     Dates: end: 20191015
  2. ASPIRIN LYSINE [Suspect]
     Active Substance: ASPIRIN LYSINE
     Indication: Product used for unknown indication
     Dosage: 100 MILLIGRAM, QD
     Route: 064
     Dates: end: 20191015
  3. PEGASYS [Suspect]
     Active Substance: PEGINTERFERON ALFA-2A
     Indication: Product used for unknown indication
     Dosage: 90 MICROGRAM, 1/WEEK
     Route: 064
     Dates: end: 20200509

REACTIONS (5)
  - Congenital megacolon [Not Recovered/Not Resolved]
  - Renal failure [Recovered/Resolved]
  - Foetal exposure during pregnancy [Unknown]
  - Oliguria [Unknown]
  - Blood creatinine increased [Recovering/Resolving]

NARRATIVE: CASE EVENT DATE: 20200505
